FAERS Safety Report 9641553 (Version 1)
Quarter: 2013Q4

REPORT INFORMATION
  Report Type: Spontaneous
  Country: US (occurrence: None)
  Receive Date: 20131022
  Receipt Date: 20131022
  Transmission Date: 20140711
  Serious: Yes (Other)
  Sender: FDA-Public Use
  Company Number: None

PATIENT
  Age: 23 Year
  Sex: Male
  Weight: 59.42 kg

DRUGS (5)
  1. ATRIPLA [Suspect]
     Indication: ANTIRETROVIRAL THERAPY
     Dates: start: 201304, end: 201310
  2. ATRIPLA [Suspect]
     Indication: HIV INFECTION
     Dates: start: 201304, end: 201310
  3. ESCITALOPRAM [Concomitant]
  4. ONDANSETRON [Concomitant]
  5. ALBUTEROL-IPRATROPIUM [Concomitant]

REACTIONS (3)
  - Nausea [None]
  - Abdominal pain [None]
  - Diarrhoea [None]
